FAERS Safety Report 7325587-0 (Version None)
Quarter: 2011Q1

REPORT INFORMATION
  Report Type: 
  Country: None (occurrence: None)
  Receive Date: 20110302
  Receipt Date: 20110215
  Transmission Date: 20110831
  Serious: Yes (Other)
  Sender: FDA-Public Use
  Company Number: US-BAYER-201023234NA

PATIENT
  Sex: Female
  Weight: 121.54 kg

DRUGS (8)
  1. YAZ [Suspect]
     Indication: PRODUCT USED FOR UNKNOWN INDICATION
     Route: 048
     Dates: start: 20080101
  2. VERAPAMIL [Concomitant]
     Indication: BLOOD PRESSURE INCREASED
     Dosage: UNK
     Dates: start: 20081216
  3. ATIVAN [Concomitant]
     Indication: BLOOD MAGNESIUM DECREASED
     Dosage: UNK
     Dates: start: 20081210
  4. VERAPAMIL [Concomitant]
     Indication: MIGRAINE PROPHYLAXIS
  5. YASMIN [Suspect]
     Indication: PRODUCT USED FOR UNKNOWN INDICATION
     Route: 048
     Dates: start: 20080101
  6. DROSPIRENONE AND ETHINYL ESTRADIOL [Suspect]
     Indication: PRODUCT USED FOR UNKNOWN INDICATION
     Route: 048
     Dates: start: 20080101
  7. LASIX [Concomitant]
     Indication: BLOOD PRESSURE INCREASED
  8. MULTI-VITAMINS [Concomitant]

REACTIONS (6)
  - HEMIPARESIS [None]
  - CEREBRAL INFARCTION [None]
  - FALL [None]
  - CEREBROVASCULAR ACCIDENT [None]
  - HYPOAESTHESIA [None]
  - PARAESTHESIA [None]
